FAERS Safety Report 8450983 (Version 4)
Quarter: 2013Q1

REPORT INFORMATION
  Report Type: Spontaneous
  Country: US (occurrence: None)
  Receive Date: 20120301
  Receipt Date: 20121212
  Transmission Date: 20140127
  Serious: Yes (Hospitalization, Other)
  Sender: FDA-Public Use
  Company Number: CIP11001748

PATIENT
  Age: 60 Year
  Sex: Female
  Weight: 113.6 kg

DRUGS (39)
  1. ACTONEL [Suspect]
     Indication: OSTEOPOROSIS
     Route: 048
     Dates: start: 20031217, end: 200708
  2. ACTONEL [Suspect]
     Dosage: 150 MG ONCE MONTHLY, ORAL
     Route: 048
     Dates: start: 20081119, end: 200912
  3. FOSAMAX [Suspect]
     Route: 048
     Dates: start: 20070809, end: 200810
  4. HYZAAR  /01284801/ (HYDROCHLOROTHIAZIDE, LOSARTAN POTASSIUM [Concomitant]
  5. HYDROCODONE BITARTRATE [Concomitant]
  6. LEXAPRO [Concomitant]
  7. ENBREL [Concomitant]
  8. LYRICA [Concomitant]
  9. LIPITOR [Concomitant]
  10. FOLIC ACID [Concomitant]
  11. NEXIUM [Concomitant]
  12. CYANOCOBALAMIN [Concomitant]
  13. TORSEMIDE [Concomitant]
  14. PREDNISONE [Concomitant]
  15. POTASSIUM CHLORIDE [Concomitant]
  16. METHOTREXATE SODIUM [Concomitant]
  17. HYDROCODONE W/PARACETAMOL (HYDROCODONE, PARACETAMOL) [Concomitant]
  18. ERGOCALCIFEROL [Concomitant]
  19. IRON PREPARATIONS [Concomitant]
  20. AMOXICILLIN [Concomitant]
  21. NYSTATIN [Concomitant]
  22. CYMBALTA [Concomitant]
  23. CEFUROXIME AXETIL [Concomitant]
  24. AVELOX [Concomitant]
  25. DOXYCYCLINE HYCLATE [Concomitant]
  26. MULTIVITAMIN /00097801/ (ASCORBIC ACID, CALCIUM PANTOTHENATE, ERGOCALCIFEROL, NICOTINAMIDE, PYRIDOXI [Concomitant]
  27. CALCIUM CARBONATE [Concomitant]
  28. PREVACID [Concomitant]
  29. PROZAC [Concomitant]
  30. PRAVACHOL [Concomitant]
  31. TYLENOL ARTHRITIS (PARACETAMOL) [Concomitant]
  32. VICOPROFEN [Concomitant]
  33. ACETYLSALICYLIC ACID (ACETYLSALICYLIC ACID) [Concomitant]
  34. WELLBUTRIN (BUPROPION HYDROCHLORIDE) [Concomitant]
  35. FERROUS SULFATE [Concomitant]
  36. PRILOSEC [Concomitant]
  37. VITAMIN C /00008001/ (ASCORBIC ACID) [Concomitant]
  38. DYAZIDE [Concomitant]
  39. IBUPROFEN (IBUPROFEN) [Concomitant]

REACTIONS (14)
  - Femur fracture [None]
  - Comminuted fracture [None]
  - Fall [None]
  - Fracture nonunion [None]
  - Device breakage [None]
  - Abscess soft tissue [None]
  - Dysstasia [None]
  - Joint crepitation [None]
  - Pain in extremity [None]
  - Oedema peripheral [None]
  - Bone graft [None]
  - Tibia fracture [None]
  - Stress fracture [None]
  - Fibula fracture [None]
